FAERS Safety Report 11707084 (Version 2)
Quarter: 2015Q4

REPORT INFORMATION
  Report Type: Spontaneous
  Country: DE (occurrence: DE)
  Receive Date: 20151106
  Receipt Date: 20151210
  Transmission Date: 20160304
  Serious: Yes (Other)
  Sender: FDA-Public Use
  Company Number: DE-TEVA-605884GER

PATIENT

DRUGS (5)
  1. RITUXIMAB [Suspect]
     Active Substance: RITUXIMAB
     Indication: B-CELL LYMPHOMA
     Dosage: ON DAYS 0, 1, 4, 8, 15, 22, 29, 47, 61, AND 75
     Route: 065
  2. VINCRISTINE [Suspect]
     Active Substance: VINCRISTINE
     Indication: B-CELL LYMPHOMA
     Dosage: DAYS 0, 1, 4, 8, 15, 22, 29, 47, 61, AND 75
     Route: 065
  3. CYCLOPHOSPHAMIDE. [Suspect]
     Active Substance: CYCLOPHOSPHAMIDE
     Indication: B-CELL LYMPHOMA
     Dosage: DAYS 0, 1, 4, 8, 15, 22, 29, 47, 61, AND 75
     Route: 065
  4. METHOTREXATE [Concomitant]
     Active Substance: METHOTREXATE
     Dosage: 3.0 G/M2 ON DAYS 30 AND 76
     Route: 065
  5. DOXORUBICIN [Suspect]
     Active Substance: DOXORUBICIN
     Indication: B-CELL LYMPHOMA
     Dosage: DAYS 0, 1, 4, 8, 15, 22, 29, 47, 61, AND 75
     Route: 065

REACTIONS (1)
  - Infection [Unknown]
